FAERS Safety Report 5584646-3 (Version None)
Quarter: 2008Q1

REPORT INFORMATION
  Report Type: 
  Country: None (occurrence: None)
  Receive Date: 20080108
  Receipt Date: 20071228
  Transmission Date: 20080703
  Serious: Yes (Other)
  Sender: FDA-Public Use
  Company Number: BR-PFIZER INC-2008000059

PATIENT
  Sex: Female

DRUGS (1)
  1. CELEBRA [Suspect]
     Indication: BACK DISORDER
     Dosage: DAILY DOSE:400MG
     Route: 048
     Dates: start: 20071101, end: 20071201

REACTIONS (4)
  - ABDOMINAL PAIN UPPER [None]
  - DYSPNOEA [None]
  - OESOPHAGITIS [None]
  - WEIGHT DECREASED [None]
